FAERS Safety Report 15775466 (Version 3)
Quarter: 2019Q1

REPORT INFORMATION
  Report Type: Report from Study
  Country: US (occurrence: US)
  Receive Date: 20181231
  Receipt Date: 20190108
  Transmission Date: 20190417
  Serious: Yes (Hospitalization)
  Sender: FDA-Public Use
  Company Number: US-GILEAD-2018-0382350

PATIENT
  Age: 21 Year
  Sex: Female

DRUGS (2)
  1. AMBRISENTAN [Suspect]
     Active Substance: AMBRISENTAN
     Indication: PRODUCT USED FOR UNKNOWN INDICATION
     Dosage: 10 MG, QD
     Route: 065
     Dates: start: 20160602
  2. REMODULIN [Concomitant]
     Active Substance: TREPROSTINIL

REACTIONS (6)
  - Peripheral swelling [Not Recovered/Not Resolved]
  - Dyspnoea [Unknown]
  - Hypokalaemia [Unknown]
  - Catheter site infection [Not Recovered/Not Resolved]
  - Catheter site swelling [Not Recovered/Not Resolved]
  - Pain in extremity [Not Recovered/Not Resolved]
